FAERS Safety Report 7765572-8 (Version None)
Quarter: 2011Q3

REPORT INFORMATION
  Report Type: 
  Country: None (occurrence: None)
  Receive Date: 20110921
  Receipt Date: 20101228
  Transmission Date: 20111222
  Serious: No
  Sender: FDA-Public Use
  Company Number: US-BAYER-2011-000521

PATIENT
  Age: 51 Year
  Sex: Female

DRUGS (4)
  1. GLUCOPHAGE [Concomitant]
  2. ULTRAVIST 150 [Suspect]
     Indication: COMPUTERISED TOMOGRAM
     Dosage: 90 ML, UNK
     Route: 042
     Dates: start: 20101123
  3. ULTRAVIST 150 [Suspect]
     Indication: NASAL CAVITY MASS
  4. INSULINS AND ANALOGUES [Concomitant]

REACTIONS (1)
  - PRURITUS [None]
